FAERS Safety Report 8921727 (Version 1)
Quarter: 2012Q4

REPORT INFORMATION
  Report Type: 
  Country: DK (occurrence: GB)
  Receive Date: 20121121
  Receipt Date: 20121121
  Transmission Date: 20130627
  Serious: Yes (Other)
  Sender: FDA-Public Use
  Company Number: GB-FRI-1000040577

PATIENT
  Age: 53 Year
  Sex: Female
  Weight: 77 kg

DRUGS (9)
  1. CITALOPRAM [Suspect]
     Route: 048
     Dates: start: 20121015, end: 20121029
  2. CODEINE PHOSPHATE [Concomitant]
     Dates: start: 20121015
  3. ETANERCEPT [Concomitant]
     Dates: start: 20121009
  4. LISINOPRIL [Concomitant]
     Dates: start: 20120914
  5. MEBEVERINE HYDROCHLORIDE [Concomitant]
     Dates: start: 20121005
  6. MORPHINE SULPHATE [Concomitant]
     Dates: start: 20120717, end: 20120811
  7. OMEPRAZOLE [Concomitant]
     Dates: start: 20120711, end: 20120808
  8. PREMARIN [Concomitant]
     Dates: start: 20120418
  9. TRAMADOL [Concomitant]
     Dates: start: 20120717

REACTIONS (1)
  - Rheumatoid arthritis [Recovering/Resolving]
